FAERS Safety Report 9471731 (Version 1)
Quarter: 2013Q3

REPORT INFORMATION
  Report Type: Spontaneous
  Country: FR (occurrence: None)
  Receive Date: 20130819
  Receipt Date: 20130819
  Transmission Date: 20140515
  Serious: Yes (Life-Threatening, Hospitalization)
  Sender: FDA-Public Use
  Company Number: SYM-2013-08432

PATIENT
  Age: 43 Year
  Sex: Male

DRUGS (3)
  1. FLAGYL [Suspect]
     Indication: ABDOMINAL PAIN
     Route: 048
     Dates: start: 20120417, end: 20120417
  2. CARBOSYLANE [Suspect]
     Indication: ABDOMINAL PAIN
     Route: 048
     Dates: start: 20120417, end: 20120417
  3. DEBRIDATE (TRIMEBUTINE MALEATE) (TRIMEBUTINE MALEATE) [Concomitant]

REACTIONS (10)
  - Rash macular [None]
  - Pruritus [None]
  - Dizziness [None]
  - Chills [None]
  - Vomiting [None]
  - Haemodynamic instability [None]
  - Tachypnoea [None]
  - Urticaria [None]
  - Aspiration [None]
  - Abdominal pain [None]
